FAERS Safety Report 16694283 (Version 1)
Quarter: 2019Q3

REPORT INFORMATION
  Report Type: Spontaneous
  Country: US (occurrence: US)
  Receive Date: 20190812
  Receipt Date: 20190812
  Transmission Date: 20191004
  Serious: Yes (Other)
  Sender: FDA-Public Use
  Company Number: US-BAYER-2019-140095

PATIENT
  Age: 74 Year
  Sex: Female

DRUGS (1)
  1. NEXAVAR [Suspect]
     Active Substance: SORAFENIB
     Indication: HEPATOCELLULAR CARCINOMA
     Dosage: 400 MG, BID
     Dates: start: 20190509

REACTIONS (5)
  - Neuropathy peripheral [None]
  - Pain in extremity [None]
  - Diarrhoea [Not Recovered/Not Resolved]
  - Fatigue [None]
  - Hypertension [None]

NARRATIVE: CASE EVENT DATE: 20190725
